FAERS Safety Report 4613920-X (Version None)
Quarter: 2005Q1

REPORT INFORMATION
  Report Type: 
  Country: None (occurrence: None)
  Receive Date: 20050321
  Receipt Date: 20050309
  Transmission Date: 20050727
  Serious: Yes (Other)
  Sender: FDA-Public Use
  Company Number: CH-GLAXOSMITHKLINE-B0375139A

PATIENT
  Age: 83 Year
  Sex: Male

DRUGS (17)
  1. AUGMENTIN '125' [Suspect]
     Indication: ILL-DEFINED DISORDER
     Dosage: 625MG THREE TIMES PER DAY
     Route: 048
     Dates: start: 20050219, end: 20050225
  2. ENALAPRIL MALEATE [Suspect]
     Indication: ILL-DEFINED DISORDER
     Dosage: 10MG TWICE PER DAY
     Route: 048
     Dates: start: 20050223, end: 20050224
  3. CAPTOPRIL [Suspect]
     Indication: ILL-DEFINED DISORDER
     Dosage: 6.25MG THREE TIMES PER DAY
     Route: 048
     Dates: start: 20050216, end: 20050223
  4. PREDNISOLONE [Suspect]
     Indication: ILL-DEFINED DISORDER
     Dosage: 40MG PER DAY
     Route: 048
     Dates: start: 20050220, end: 20050224
  5. FUROSEMIDE [Suspect]
     Indication: ILL-DEFINED DISORDER
     Dosage: 40MG PER DAY
     Route: 042
     Dates: start: 20050219, end: 20050223
  6. LOSARTAN POTASSIUM [Suspect]
     Indication: ILL-DEFINED DISORDER
     Dosage: 100MG PER DAY
     Route: 048
     Dates: start: 20050224, end: 20050225
  7. CLARITHROMYCIN [Suspect]
     Indication: ILL-DEFINED DISORDER
     Dosage: 500MG TWICE PER DAY
     Route: 048
     Dates: start: 20050221, end: 20050225
  8. PRAVASTATIN SODIUM [Suspect]
     Indication: ILL-DEFINED DISORDER
     Dosage: 20MG PER DAY
     Route: 065
  9. HEPARIN SODIUM [Concomitant]
     Indication: ILL-DEFINED DISORDER
     Dosage: 5000IU TWICE PER DAY
     Route: 058
     Dates: start: 20050219
  10. CLOPIDOGREL BISULFATE [Concomitant]
     Indication: ILL-DEFINED DISORDER
     Dosage: 75MG PER DAY
     Route: 048
     Dates: start: 20050220
  11. CLONAZEPAM [Concomitant]
     Indication: ILL-DEFINED DISORDER
     Dosage: .75MG TWICE PER DAY
     Route: 048
  12. BUPRENORPHINE HCL [Concomitant]
     Indication: ILL-DEFINED DISORDER
     Dosage: .1MG THREE TIMES PER DAY
     Route: 060
  13. HYDROXYZINE HYDROCHLORIDE [Concomitant]
     Indication: ILL-DEFINED DISORDER
     Dosage: 25MG TWICE PER DAY
     Route: 065
  14. LEVOTHYROXINE SODIUM [Concomitant]
     Indication: ILL-DEFINED DISORDER
     Dosage: 50MCG PER DAY
     Route: 048
  15. ESOMEPRAZOLE MAGNESIUM [Concomitant]
     Indication: ILL-DEFINED DISORDER
     Dosage: 20MG PER DAY
     Route: 048
  16. NITROGLYCERIN [Concomitant]
     Indication: ILL-DEFINED DISORDER
     Dosage: 10MG PER DAY
     Route: 062
  17. TORSEMIDE [Concomitant]
     Indication: ILL-DEFINED DISORDER
     Route: 048

REACTIONS (5)
  - ABDOMINAL PAIN UPPER [None]
  - BLOOD AMYLASE INCREASED [None]
  - C-REACTIVE PROTEIN INCREASED [None]
  - LIPASE INCREASED [None]
  - PANCREATITIS [None]
